FAERS Safety Report 24286481 (Version 1)
Quarter: 2024Q3

REPORT INFORMATION
  Report Type: Spontaneous
  Country: CZ (occurrence: CZ)
  Receive Date: 20240905
  Receipt Date: 20240905
  Transmission Date: 20241016
  Serious: Yes (Other)
  Sender: VERTEX
  Company Number: CZ-VERTEX PHARMACEUTICALS-2024-013847

PATIENT
  Age: 11 Year
  Sex: Female

DRUGS (4)
  1. ELEXACAFTOR\IVACAFTOR\TEZACAFTOR [Suspect]
     Active Substance: ELEXACAFTOR\IVACAFTOR\TEZACAFTOR
     Indication: Cystic fibrosis
     Dosage: 37.5 IVACAFTOR/ 25 TEZACAFTOR/ 50 ELEXACAFTOR, UNK FREQ
     Route: 048
     Dates: start: 20221003
  2. ELEXACAFTOR\IVACAFTOR\TEZACAFTOR [Suspect]
     Active Substance: ELEXACAFTOR\IVACAFTOR\TEZACAFTOR
     Dosage: 75MG IVACAFTOR/ 50MG TEZACAFTOR/ 100MG ELEXACAFTOR, UNK FREQ
     Route: 048
     Dates: start: 20240610
  3. KALYDECO [Suspect]
     Active Substance: IVACAFTOR
     Indication: Cystic fibrosis
     Dosage: 75MG, TABLET
     Route: 048
     Dates: start: 20221003
  4. KALYDECO [Suspect]
     Active Substance: IVACAFTOR
     Dosage: 150MG, TABLET
     Route: 048
     Dates: start: 20240610

REACTIONS (2)
  - Suicidal ideation [Unknown]
  - Anxiety [Unknown]

NARRATIVE: CASE EVENT DATE: 20240701
